FAERS Safety Report 6152188-2 (Version None)
Quarter: 2009Q2

REPORT INFORMATION
  Report Type: 
  Country: None (occurrence: None)
  Receive Date: 20090410
  Receipt Date: 20080728
  Transmission Date: 20091009
  Serious: No
  Sender: FDA-Public Use
  Company Number: US-ASTRAZENECA-2008UW14633

PATIENT
  Sex: Female

DRUGS (1)
  1. ATENOLOL [Suspect]
     Route: 048

REACTIONS (2)
  - HEART RATE DECREASED [None]
  - MEDICATION ERROR [None]
